FAERS Safety Report 8183048-3 (Version None)
Quarter: 2012Q1

REPORT INFORMATION
  Report Type: 
  Country: None (occurrence: None)
  Receive Date: 20120305
  Receipt Date: 20120224
  Transmission Date: 20120608
  Serious: Yes (Disabling, Other)
  Sender: FDA-Public Use
  Company Number: SK-AMGEN-SVKSP2012000492

PATIENT
  Age: 64 Year
  Sex: Female
  Weight: 59 kg

DRUGS (8)
  1. VOLTAREN [Concomitant]
     Dosage: UNK
  2. ALLOPURINOL [Concomitant]
     Dosage: UNK, UNK
  3. DISOPHROL [Concomitant]
     Dosage: UNK
  4. NORIPAM [Concomitant]
     Dosage: UNK
  5. PROLIA [Suspect]
     Indication: OSTEOPOROSIS POSTMENOPAUSAL
     Dosage: UNK
     Dates: start: 20110326, end: 20110327
  6. D3 [Concomitant]
     Dosage: UNK
  7. PIRABENE [Concomitant]
     Dosage: UNK, UNK
  8. METHOTREXATE [Suspect]
     Indication: RHEUMATOID ARTHRITIS
     Dosage: UNK

REACTIONS (10)
  - VOMITING [None]
  - NAUSEA [None]
  - MUSCULOSKELETAL STIFFNESS [None]
  - NERVOUSNESS [None]
  - ANXIETY [None]
  - HEADACHE [None]
  - DIZZINESS [None]
  - MUSCLE RIGIDITY [None]
  - SENSATION OF PRESSURE [None]
  - MUSCLE SPASMS [None]
